FAERS Safety Report 6801494-4 (Version None)
Quarter: 2010Q2

REPORT INFORMATION
  Report Type: 
  Country: None (occurrence: None)
  Receive Date: 20100629
  Receipt Date: 20100616
  Transmission Date: 20101027
  Serious: Yes (Hospitalization, Other)
  Sender: FDA-Public Use
  Company Number: US-ELI_LILLY_AND_COMPANY-US201004004061

PATIENT
  Sex: Male

DRUGS (13)
  1. FORTEO [Suspect]
     Indication: OSTEOPOROSIS
     Dosage: 20 UG, DAILY (1/D)
     Dates: start: 20091025
  2. HUMALOG [Suspect]
     Dates: start: 19910101
  3. ACIPHEX [Concomitant]
     Dosage: 20 MG, EACH MORNING
  4. LEVOTHYROXINE SODIUM [Concomitant]
     Dosage: 125 UG, EACH MORNING
  5. CALCIUM PLUS D3 [Concomitant]
     Dosage: 600 MG, 3/D
  6. TOPROL-XL [Concomitant]
     Dosage: 50 MG, 2/D
  7. ASPIRIN [Concomitant]
     Dosage: 325 MG, EACH MORNING
  8. LOVAZA [Concomitant]
     Dosage: UNK, DAILY (1/D)
  9. PLAVIX [Concomitant]
     Dosage: 75 MG, DAILY (1/D)
  10. CENTRUM SILVER [Concomitant]
     Dosage: UNK, DAILY (1/D)
  11. ZOCOR [Concomitant]
     Dosage: 20 MG, EACH EVENING
  12. VITAMIN B-12 [Concomitant]
     Dosage: UNK, MONTHLY (1/M)
  13. LANTUS [Concomitant]
     Dosage: 22 U, EACH EVENING

REACTIONS (6)
  - ANGIOPATHY [None]
  - CARDIAC FIBRILLATION [None]
  - ELECTROCARDIOGRAM ABNORMAL [None]
  - MYOCARDIAL INFARCTION [None]
  - STENT PLACEMENT [None]
  - THROMBOSIS IN DEVICE [None]
